FAERS Safety Report 10339767 (Version 1)
Quarter: 2014Q3

REPORT INFORMATION
  Report Type: Spontaneous
  Country: US (occurrence: US)
  Receive Date: 20140724
  Receipt Date: 20140724
  Transmission Date: 20150326
  Serious: No
  Sender: FDA-Public Use
  Company Number: US-PFIZER INC-2014202943

PATIENT

DRUGS (2)
  1. NEURONTIN [Suspect]
     Active Substance: GABAPENTIN
     Dosage: UNK
  2. TOPAMAX [Concomitant]
     Active Substance: TOPIRAMATE
     Indication: BACK PAIN

REACTIONS (5)
  - Psychomotor hyperactivity [Unknown]
  - Drug ineffective [Unknown]
  - Agitation [Unknown]
  - Anger [Unknown]
  - Impatience [Unknown]
